FAERS Safety Report 8018336-4 (Version None)
Quarter: 2012Q1

REPORT INFORMATION
  Report Type: 
  Country: None (occurrence: None)
  Receive Date: 20120103
  Receipt Date: 20111222
  Transmission Date: 20120608
  Serious: Yes (Other)
  Sender: FDA-Public Use
  Company Number: BR-JNJFOC-20111211865

PATIENT
  Sex: Male
  Weight: 75 kg

DRUGS (2)
  1. BUDESONIDE W/FORMOTEROL FUMARATE [Concomitant]
     Indication: ASTHMA
     Route: 048
     Dates: start: 20111101
  2. HYDROGEN PEROXIDE SOLUTION [Suspect]
     Indication: PRODUCT USED FOR UNKNOWN INDICATION
     Route: 048
     Dates: start: 20111219, end: 20111221

REACTIONS (6)
  - APHTHOUS STOMATITIS [None]
  - SENSITIVITY OF TEETH [None]
  - TONGUE BLISTERING [None]
  - NECK MASS [None]
  - GINGIVAL DISORDER [None]
  - PYREXIA [None]
